FAERS Safety Report 25401449 (Version 1)
Quarter: 2025Q2

REPORT INFORMATION
  Report Type: Spontaneous
  Country: IT (occurrence: IT)
  Receive Date: 20250605
  Receipt Date: 20250605
  Transmission Date: 20250716
  Serious: Yes (Hospitalization)
  Sender: MYLAN
  Company Number: IT-MYLANLABS-2025M1047445

PATIENT
  Age: 8 Year
  Sex: Female

DRUGS (3)
  1. PREDNISONE [Suspect]
     Active Substance: PREDNISONE
     Indication: Pityriasis lichenoides et varioliformis acuta
     Dosage: 2 MILLIGRAM/KILOGRAM, QD
  2. ERYTHROMYCIN [Suspect]
     Active Substance: ERYTHROMYCIN
     Indication: Pityriasis lichenoides et varioliformis acuta
     Dosage: 30 MILLIGRAM/KILOGRAM, QD
  3. PENICILLIN G [Suspect]
     Active Substance: PENICILLIN G
     Indication: Prophylaxis

REACTIONS (1)
  - Drug ineffective [Unknown]
